FAERS Safety Report 23408082 (Version 1)
Quarter: 2024Q1

REPORT INFORMATION
  Report Type: Spontaneous
  Country: JP (occurrence: JP)
  Receive Date: 20240117
  Receipt Date: 20240117
  Transmission Date: 20240410
  Serious: Yes (Other)
  Sender: FDA-Public Use
  Company Number: JP-MSD-M2024-00810

PATIENT
  Age: 7 Decade
  Sex: Female

DRUGS (1)
  1. JANUVIA [Suspect]
     Active Substance: SITAGLIPTIN PHOSPHATE
     Indication: Type 2 diabetes mellitus
     Dosage: UNK
     Route: 048

REACTIONS (6)
  - Neoplasm malignant [Unknown]
  - Nasal disorder [Unknown]
  - Limb discomfort [Recovered/Resolved]
  - Visual field defect [Unknown]
  - Pain in extremity [Recovered/Resolved]
  - Diabetic retinopathy [Unknown]

NARRATIVE: CASE EVENT DATE: 20140101
